FAERS Safety Report 5402144-4 (Version None)
Quarter: 2007Q3

REPORT INFORMATION
  Report Type: 
  Country: None (occurrence: None)
  Receive Date: 20070727
  Receipt Date: 20070718
  Transmission Date: 20080115
  Serious: Yes (Other)
  Sender: FDA-Public Use
  Company Number: 2007BI013381

PATIENT
  Sex: Female

DRUGS (1)
  1. NATALIZUMAB [Suspect]
     Indication: DRUG USE FOR UNKNOWN INDICATION
     Dosage: 300 MG;QW;IV
     Route: 042

REACTIONS (2)
  - CONVULSION [None]
  - TREMOR [None]
